FAERS Safety Report 11279019 (Version 2)
Quarter: 2015Q3

REPORT INFORMATION
  Report Type: Spontaneous
  Country: JP (occurrence: None)
  Receive Date: 20150715
  Receipt Date: 20150908
  Transmission Date: 20151125
  Serious: Yes (Life-Threatening, Hospitalization)
  Sender: FDA-Public Use
  Company Number: 2015-JP-000002

PATIENT
  Age: 40 Year
  Sex: Female
  Weight: 57 kg

DRUGS (6)
  1. METHERGINE [Suspect]
     Active Substance: METHYLERGONOVINE MALEATE
     Indication: POSTPARTUM UTERINE SUBINVOLUTION
     Route: 048
     Dates: start: 20150627, end: 20150627
  2. LOXONIN (LOXOPROFEN SODIUM) [Concomitant]
     Active Substance: LOXOPROFEN SODIUM
  3. METHERGINE [Suspect]
     Active Substance: METHYLERGONOVINE MALEATE
     Indication: UTERINE HYPERSTIMULATION
     Route: 048
     Dates: start: 20150627, end: 20150627
  4. METHERGINE [Suspect]
     Active Substance: METHYLERGONOVINE MALEATE
     Indication: HAEMOSTASIS
     Route: 048
     Dates: start: 20150627, end: 20150627
  5. MUCOSTA (REBAMIPIDE) [Concomitant]
  6. FLOMAX (CEFCAPENE PIVOXIL HCL) [Concomitant]

REACTIONS (1)
  - Subarachnoid haemorrhage [None]

NARRATIVE: CASE EVENT DATE: 201506
